FAERS Safety Report 15999737 (Version 2)
Quarter: 2019Q1

REPORT INFORMATION
  Report Type: Spontaneous
  Country: US (occurrence: US)
  Receive Date: 20190225
  Receipt Date: 20190321
  Transmission Date: 20190418
  Serious: No
  Sender: FDA-Public Use
  Company Number: US-PFIZER INC-2019080511

PATIENT
  Age: 76 Year
  Sex: Female
  Weight: 74.38 kg

DRUGS (1)
  1. IBRANCE [Suspect]
     Active Substance: PALBOCICLIB
     Indication: BREAST CANCER
     Dosage: 125 MG, CYCLIC (D1-21 Q28 DAYS)
     Route: 048
     Dates: start: 20190207

REACTIONS (8)
  - White blood cell count decreased [Unknown]
  - Dry mouth [Unknown]
  - Decreased appetite [Unknown]
  - Sleep disorder [Unknown]
  - Asthenia [Unknown]
  - Dizziness postural [Unknown]
  - Somnolence [Unknown]
  - Back pain [Unknown]

NARRATIVE: CASE EVENT DATE: 2019
